FAERS Safety Report 6085294-1 (Version None)
Quarter: 2009Q1

REPORT INFORMATION
  Report Type: 
  Country: None (occurrence: None)
  Receive Date: 20090212
  Receipt Date: 20080617
  Transmission Date: 20090719
  Serious: Yes (Hospitalization)
  Sender: FDA-Public Use
  Company Number: 570746

PATIENT
  Age: 26 Year
  Sex: Male

DRUGS (1)
  1. INVIRASE [Suspect]
     Indication: HIV INFECTION
     Dosage: 2 PER DAY

REACTIONS (4)
  - BONE TUBERCULOSIS [None]
  - HAEMATURIA [None]
  - MYCOBACTERIAL INFECTION [None]
  - TUBERCULOUS ABSCESS CENTRAL NERVOUS SYSTEM [None]
